FAERS Safety Report 22813490 (Version 2)
Quarter: 2025Q4

REPORT INFORMATION
  Report Type: Report from Study
  Country: KR (occurrence: KR)
  Receive Date: 20230811
  Receipt Date: 20251229
  Transmission Date: 20260117
  Serious: Yes (Other)
  Sender: NOVARTIS
  Company Number: KR-002147023-NVSC2023KR174894

PATIENT
  Age: 73 Year
  Sex: Female

DRUGS (9)
  1. BEOVU [Suspect]
     Active Substance: BROLUCIZUMAB-DBLL
     Indication: Neovascular age-related macular degeneration
     Dosage: 6 MG
     Route: 031
     Dates: start: 20230220, end: 20230220
  2. BEOVU [Suspect]
     Active Substance: BROLUCIZUMAB-DBLL
     Dosage: 6 MG
     Route: 031
     Dates: start: 20230327, end: 20230327
  3. LEVOFLOXACIN [Concomitant]
     Active Substance: LEVOFLOXACIN
     Indication: Evidence based treatment
     Dosage: 1 DRP, 6 (EYE DROP) (OPHTHALMIC SOLUTION)
     Route: 047
     Dates: start: 20230220, end: 20230225
  4. LEVOFLOXACIN [Concomitant]
     Active Substance: LEVOFLOXACIN
     Dosage: 1 DRP, 6 (EYE DROP) (OPHTHALMIC SOLUTION)
     Route: 047
     Dates: start: 20230327, end: 20230401
  5. EXFORGE [Concomitant]
     Active Substance: AMLODIPINE BESYLATE\VALSARTAN
     Indication: Hypertension
     Dosage: UNK
     Route: 065
     Dates: start: 200301
  6. MOBIC [Concomitant]
     Active Substance: MELOXICAM
     Indication: Rheumatoid arthritis
     Dosage: 7.5 MG
     Route: 065
     Dates: start: 201701
  7. RABESTA [Concomitant]
     Indication: Gastritis prophylaxis
     Dosage: 10 MG
     Route: 065
     Dates: start: 201701
  8. TIZALEAD [Concomitant]
     Indication: Rheumatoid arthritis
     Dosage: 1 MG
     Route: 065
     Dates: start: 201701
  9. AVOCADO\SOYBEAN OIL [Concomitant]
     Active Substance: AVOCADO\SOYBEAN OIL
     Indication: Rheumatoid arthritis
     Dosage: 300 MG
     Route: 065
     Dates: start: 201701

REACTIONS (1)
  - Idiopathic orbital inflammation [Recovered/Resolved]

NARRATIVE: CASE EVENT DATE: 20230508
